FAERS Safety Report 17543926 (Version 1)
Quarter: 2020Q1

REPORT INFORMATION
  Report Type: Spontaneous
  Country: NL (occurrence: NL)
  Receive Date: 20200316
  Receipt Date: 20200316
  Transmission Date: 20200409
  Serious: Yes (Other)
  Sender: FDA-Public Use
  Company Number: NL-MYLANLABS-2020M1028342

PATIENT
  Age: 63 Year
  Sex: Female
  Weight: 67 kg

DRUGS (1)
  1. NITROFURANTOIN. [Suspect]
     Active Substance: NITROFURANTOIN
     Indication: CYSTITIS
     Dosage: CAPSULE, BIJ BLAASONTSTEKING: KUUR VAN 20 CAPSULES, 4 CAPSULES PER DAG. KUUR AFMAKEN
     Dates: start: 202002, end: 20200212

REACTIONS (3)
  - Syncope [Recovering/Resolving]
  - Gastrointestinal pain [Recovered/Resolved]
  - Headache [Recovered/Resolved]

NARRATIVE: CASE EVENT DATE: 20200208
